FAERS Safety Report 7083928-6 (Version None)
Quarter: 2010Q4

REPORT INFORMATION
  Report Type: 
  Country: None (occurrence: None)
  Receive Date: 20101104
  Receipt Date: 20100209
  Transmission Date: 20110411
  Serious: No
  Sender: FDA-Public Use
  Company Number: US-ABBOTT-09P-163-0611085-00

PATIENT
  Sex: Male
  Weight: 79.45 kg

DRUGS (2)
  1. KALETRA [Suspect]
     Indication: HIV TEST POSITIVE
     Route: 048
     Dates: start: 20040101
  2. TRUVADA [Suspect]
     Indication: HIV TEST POSITIVE
     Route: 048

REACTIONS (4)
  - BACK INJURY [None]
  - BARRETT'S OESOPHAGUS [None]
  - NAUSEA [None]
  - WEIGHT DECREASED [None]
